FAERS Safety Report 7930377-1 (Version None)
Quarter: 2011Q4

REPORT INFORMATION
  Report Type: 
  Country: None (occurrence: None)
  Receive Date: 20111121
  Receipt Date: 20110817
  Transmission Date: 20120403
  Serious: No
  Sender: FDA-Public Use
  Company Number: US-BAYER-2011-078837

PATIENT
  Age: 77 Year
  Sex: Female
  Weight: 61 kg

DRUGS (4)
  1. NAPROXEN (ALEVE) [Suspect]
     Indication: ARTHRITIS
     Dosage: 1 DF, QD
     Route: 048
     Dates: start: 20090817
  2. ALEVE (CAPLET) [Suspect]
     Dosage: 1 DF, QD
     Route: 048
  3. ANTIHYPERTENSIVES [Concomitant]
  4. GLAUCOMA MEDICATION [Concomitant]

REACTIONS (2)
  - NO ADVERSE EVENT [None]
  - ABDOMINAL DISCOMFORT [None]
